FAERS Safety Report 6132165-8 (Version None)
Quarter: 2009Q1

REPORT INFORMATION
  Report Type: 
  Country: None (occurrence: None)
  Receive Date: 20090325
  Receipt Date: 20090319
  Transmission Date: 20090719
  Serious: Yes (Hospitalization)
  Sender: FDA-Public Use
  Company Number: B0565774A

PATIENT
  Age: 59 Year
  Sex: Male

DRUGS (3)
  1. AUGMENTIN '125' [Suspect]
     Route: 048
     Dates: start: 20081028, end: 20081202
  2. KETEK [Concomitant]
     Route: 065
     Dates: start: 20081020, end: 20081028
  3. JOSACINE [Concomitant]
     Route: 065
     Dates: start: 20081128

REACTIONS (2)
  - AGRANULOCYTOSIS [None]
  - APHTHOUS STOMATITIS [None]
